FAERS Safety Report 4504289-X (Version None)
Quarter: 2004Q4

REPORT INFORMATION
  Report Type: 
  Country: None (occurrence: None)
  Receive Date: 20041115
  Receipt Date: 20041008
  Transmission Date: 20050328
  Serious: Yes (Hospitalization)
  Sender: FDA-Public Use
  Company Number: STA-AE-04-MTX-474

PATIENT
  Age: 39 Year

DRUGS (10)
  1. METHOTREXATE [Suspect]
     Dosage: 20 MG 1X PER 1 WK, ORAL
     Route: 048
     Dates: start: 20020301
  2. ENBREL [Suspect]
     Indication: RHEUMATOID ARTHRITIS
  3. ARAVA [Suspect]
     Dosage: 10 MG 1X PER 1 DAY, ORAL
     Route: 048
     Dates: start: 20021101
  4. HUMIRA [Suspect]
     Dosage: 40 MG 2X PER 1 WK
     Dates: start: 20040601
  5. PREDNISONE [Suspect]
     Dosage: 5 MG 2X PER 1 DAY, ORAL
     Route: 048
     Dates: start: 20010601
  6. PRILOSEC [Concomitant]
  7. PERCOCET [Concomitant]
  8. MORPHINE SULFATE [Concomitant]
  9. NAPROSYN [Concomitant]
  10. FOSAMAX [Concomitant]

REACTIONS (1)
  - CELLULITIS [None]
